FAERS Safety Report 15284698 (Version 1)
Quarter: 2018Q3

REPORT INFORMATION
  Report Type: Spontaneous
  Country: GB (occurrence: GB)
  Receive Date: 20180816
  Receipt Date: 20180816
  Transmission Date: 20181010
  Serious: Yes (Other)
  Sender: FDA-Public Use
  Company Number: GB-SA-2018SA210570

PATIENT
  Age: 51 Year
  Sex: Female

DRUGS (2)
  1. RANITIDINE. [Suspect]
     Active Substance: RANITIDINE
     Dosage: 150 MG, BID
  2. DEXAMETHASONE ACETATE [Suspect]
     Active Substance: DEXAMETHASONE ACETATE
     Dosage: 4 MG, QID

REACTIONS (3)
  - Deep vein thrombosis [Unknown]
  - Anaemia [Unknown]
  - Thrombocytopenic purpura [Recovering/Resolving]
